FAERS Safety Report 23694652 (Version 1)
Quarter: 2024Q2

REPORT INFORMATION
  Report Type: Spontaneous
  Country: FR (occurrence: FR)
  Receive Date: 20240402
  Receipt Date: 20240402
  Transmission Date: 20240716
  Serious: Yes (Other)
  Sender: FDA-Public Use
  Company Number: FR-AFSSAPS-AN2024000361

PATIENT
  Age: 67 Year
  Sex: Male
  Weight: 77 kg

DRUGS (19)
  1. FUROSEMIDE [Suspect]
     Active Substance: FUROSEMIDE
     Indication: Fluid retention
     Dosage: 20 MILLIGRAM, ONCE A DAY
     Route: 048
     Dates: start: 20240212, end: 20240213
  2. OLANZAPINE [Suspect]
     Active Substance: OLANZAPINE
     Indication: Prophylaxis of nausea and vomiting
     Dosage: 5 MILLIGRAM
     Route: 048
     Dates: start: 20240212, end: 20240213
  3. ONDANSETRON [Suspect]
     Active Substance: ONDANSETRON
     Indication: Prophylaxis of nausea and vomiting
     Dosage: 8 MILLIGRAM
     Route: 048
     Dates: start: 20240212, end: 20240213
  4. VITAMIN B6 [Suspect]
     Active Substance: PYRIDOXINE HYDROCHLORIDE
     Indication: Vitamin supplementation
     Dosage: 500 MILLIGRAM
     Route: 048
     Dates: start: 20240212
  5. ADRIAMYCIN [Suspect]
     Active Substance: DOXORUBICIN HYDROCHLORIDE
     Indication: Liposarcoma
     Dosage: 40 MILLIGRAM, ONCE A DAY (CYCLIQUE)
     Route: 042
     Dates: start: 20240212, end: 20240213
  6. ALIZAPRIDE [Suspect]
     Active Substance: ALIZAPRIDE
     Indication: Product used for unknown indication
     Dosage: 100 MILLIGRAM
     Route: 065
     Dates: start: 20240212, end: 20240213
  7. IFOSFAMIDE [Suspect]
     Active Substance: IFOSFAMIDE
     Indication: Liposarcoma
     Dosage: 3250 MILLIGRAM, ONCE A DAY
     Route: 042
     Dates: start: 20240212, end: 20240213
  8. CHLORPROMAZINE [Suspect]
     Active Substance: CHLORPROMAZINE
     Indication: Prophylaxis of nausea and vomiting
     Dosage: 25 MILLIGRAM
     Route: 048
     Dates: start: 20240212, end: 20240213
  9. LOVENOX [Suspect]
     Active Substance: ENOXAPARIN SODIUM
     Indication: Thrombosis prophylaxis
     Dosage: 4000 INTERNATIONAL UNIT, ONCE A DAY
     Route: 058
     Dates: start: 20240212, end: 20240213
  10. METHYLPREDNISOLONE ACETATE [Suspect]
     Active Substance: METHYLPREDNISOLONE ACETATE
     Indication: Chemotherapy side effect prophylaxis
     Dosage: 60 MILLIGRAM, ONCE A DAY
     Route: 048
     Dates: start: 20240212, end: 20240213
  11. METOCLOPRAMIDE [Suspect]
     Active Substance: METOCLOPRAMIDE
     Indication: Prophylaxis of nausea and vomiting
     Dosage: 10 MILLIGRAM
     Route: 048
     Dates: start: 20240212, end: 20240213
  12. METHYLENE BLUE [Suspect]
     Active Substance: METHYLENE BLUE
     Indication: Encephalopathy
     Dosage: 300 MILLIGRAM, ONCE A DAY
     Route: 042
     Dates: start: 20240212, end: 20240213
  13. METHYLENE BLUE [Suspect]
     Active Substance: METHYLENE BLUE
     Dosage: 360 MILLIGRAM, ONCE A DAY
     Route: 042
     Dates: start: 20240214, end: 20240214
  14. METHYLENE BLUE [Suspect]
     Active Substance: METHYLENE BLUE
     Dosage: 420 MILLIGRAM, ONCE A DAY
     Route: 042
     Dates: start: 20240215, end: 20240216
  15. MESNA [Suspect]
     Active Substance: MESNA
     Indication: Prophylaxis
     Dosage: 6000 MILLIGRAM, ONCE A DAY (CYCLIQUE)
     Route: 042
     Dates: start: 20240212, end: 20240213
  16. THIAMINE HYDROCHLORIDE [Suspect]
     Active Substance: THIAMINE HYDROCHLORIDE
     Indication: Vitamin supplementation
     Dosage: 500 MILLIGRAM
     Route: 048
     Dates: start: 20240212
  17. BACTRIM [Concomitant]
     Active Substance: SULFAMETHOXAZOLE\TRIMETHOPRIM
     Indication: Product used for unknown indication
     Dosage: 1 DOSAGE FORM (3 FOIS PAR SEMAINE)
     Route: 065
  18. KARDEGIC [Concomitant]
     Active Substance: ASPIRIN DL-LYSINE
     Indication: Product used for unknown indication
     Dosage: 1 DOSAGE FORM, ONCE A DAY
     Route: 048
  19. CLOBAZAM [Concomitant]
     Active Substance: CLOBAZAM
     Indication: Product used for unknown indication
     Dosage: 1 DOSAGE FORM, 1 TOTAL
     Route: 048
     Dates: start: 20240212, end: 20240212

REACTIONS (1)
  - Haemolytic anaemia [Recovered/Resolved]

NARRATIVE: CASE EVENT DATE: 20240220
